FAERS Safety Report 11349378 (Version 1)
Quarter: 2015Q3

REPORT INFORMATION
  Report Type: Spontaneous
  Country: JP (occurrence: None)
  Receive Date: 20150805
  Receipt Date: 20150805
  Transmission Date: 20151125
  Serious: Yes (Hospitalization)
  Sender: FDA-Public Use
  Company Number: 2015JUB00239

PATIENT
  Age: 65 Year
  Sex: Female

DRUGS (6)
  1. SIMEPRIVIR [Concomitant]
  2. TACROLIMUS. [Concomitant]
     Active Substance: TACROLIMUS
  3. PEGYLATED INTERFERON NOS [Concomitant]
     Active Substance: PEGINTERFERON ALFA-2A OR PEGINTERFERON ALFA-2B OR PEGINTERFERON BETA-1A OR PEGINTERFERON LAMBDA-1A
  4. CORTICOSTEROIDS (UNSPECIFIED) [Concomitant]
     Active Substance: UNSPECIFIED INGREDIENT
  5. RIBAVIRIN (RIBAVIRIN) UNKNOWN, UNKNOWN [Suspect]
     Active Substance: RIBAVIRIN
  6. MYCOPHENOLATE MOFETIL (MYCOPHENOLATE MOFETIL) UNKNOWN [Suspect]
     Active Substance: MYCOPHENOLATE MOFETIL
     Indication: PROPHYLAXIS AGAINST TRANSPLANT REJECTION

REACTIONS (2)
  - Drug interaction [None]
  - Haemolytic anaemia [None]
